FAERS Safety Report 4504292-X (Version None)
Quarter: 2004Q4

REPORT INFORMATION
  Report Type: 
  Country: None (occurrence: None)
  Receive Date: 20041116
  Receipt Date: 20041116
  Transmission Date: 20050328
  Serious: Yes (Disabling)
  Sender: FDA-Public Use
  Company Number: None

PATIENT
  Age: 56 Year
  Sex: Female
  Weight: 90.7194 kg

DRUGS (5)
  1. NYSTATIN [Suspect]
     Indication: ORAL MUCOSAL DISCOLOURATION
     Dosage: GARGLE TWICE A DAY
  2. NYSTATIN [Suspect]
     Indication: SCAR
     Dosage: GARGLE TWICE A DAY
  3. ANITBOTIC [Concomitant]
  4. GERITOL [Concomitant]
  5. TYLENOL (CAPLET) [Concomitant]
     Indication: THERMAL BURN

REACTIONS (3)
  - BRONCHITIS [None]
  - DRUG INEFFECTIVE [None]
  - ORAL PAIN [None]
